FAERS Safety Report 7631290-X (Version None)
Quarter: 2011Q3

REPORT INFORMATION
  Report Type: 
  Country: None (occurrence: None)
  Receive Date: 20110725
  Receipt Date: 20110712
  Transmission Date: 20111222
  Serious: Yes (Hospitalization)
  Sender: FDA-Public Use
  Company Number: CH-US-EMD SERONO, INC.-7054410

PATIENT
  Sex: Female

DRUGS (3)
  1. REBIF [Suspect]
     Route: 058
     Dates: start: 20110228, end: 20110304
  2. REBIF [Suspect]
     Indication: MULTIPLE SCLEROSIS
     Route: 058
     Dates: start: 20101113, end: 20110228
  3. REBIF [Suspect]
     Dates: start: 20110401, end: 20110501

REACTIONS (6)
  - DISCOMFORT [None]
  - CHILLS [None]
  - PULMONARY EMBOLISM [None]
  - MULTIPLE SCLEROSIS [None]
  - MYOCARDIAL INFARCTION [None]
  - DEPRESSION [None]
